FAERS Safety Report 10605658 (Version 1)
Quarter: 2014Q4

REPORT INFORMATION
  Report Type: Spontaneous
  Country: DE (occurrence: DE)
  Receive Date: 20141125
  Receipt Date: 20141125
  Transmission Date: 20150529
  Serious: Yes (Hospitalization)
  Sender: FDA-Public Use
  Company Number: GXKR2014DE004288

PATIENT

DRUGS (12)
  1. DULOXETINE [Suspect]
     Active Substance: DULOXETINE
     Route: 048
     Dates: end: 20140512
  2. MAGNESIUM [Concomitant]
     Active Substance: MAGNESIUM
     Dosage: 4 DF, UNK
  3. TRAZODONE [Suspect]
     Active Substance: TRAZODONE HYDROCHLORIDE
     Dosage: 50 MG, UNK
     Route: 048
     Dates: start: 20140506, end: 20140519
  4. TRAZODONE [Suspect]
     Active Substance: TRAZODONE HYDROCHLORIDE
     Dosage: 100 MG, UNK
     Route: 048
     Dates: start: 20140520, end: 20140602
  5. DULOXETINE [Suspect]
     Active Substance: DULOXETINE
     Route: 048
     Dates: start: 20140527
  6. IBUPROFEN. [Concomitant]
     Active Substance: IBUPROFEN
     Dosage: 1200 MG, UNK
     Route: 048
  7. FOLIC ACID. [Concomitant]
     Active Substance: FOLIC ACID
     Dosage: 5 MG, UNK
     Route: 048
     Dates: start: 20140516
  8. RAMIPLUS STADA [Concomitant]
     Dosage: 0.5 DF, UNK
  9. NOVAMINSULFON [Concomitant]
     Active Substance: METAMIZOLE
     Dosage: 2000 MG, UNK
     Route: 048
  10. PANTOPRAZOLE [Concomitant]
     Active Substance: PANTOPRAZOLE SODIUM
     Dosage: 20 MG, UNK
     Route: 048
  11. ROPINIROLE. [Concomitant]
     Active Substance: ROPINIROLE
     Dosage: 0.25 MG, UNK
     Route: 048
     Dates: start: 20140604
  12. DULOXETINE [Suspect]
     Active Substance: DULOXETINE
     Route: 048
     Dates: start: 20140513, end: 20140526

REACTIONS (3)
  - Sleep disorder [Recovered/Resolved]
  - Night sweats [Recovered/Resolved]
  - Muscle spasms [Recovered/Resolved]

NARRATIVE: CASE EVENT DATE: 20140522
